FAERS Safety Report 26088446 (Version 1)
Quarter: 2025Q4

REPORT INFORMATION
  Report Type: Spontaneous
  Country: CN (occurrence: CN)
  Receive Date: 20251125
  Receipt Date: 20251125
  Transmission Date: 20260117
  Serious: Yes (Hospitalization, Other)
  Sender: SANOFI AVENTIS
  Company Number: CN-SA-2025SA348269

PATIENT
  Age: 29 Year
  Sex: Male
  Weight: 80 kg

DRUGS (4)
  1. ZOLPIDEM TARTRATE [Suspect]
     Active Substance: ZOLPIDEM TARTRATE
     Indication: Drug dependence
     Dosage: 0.5 TABLETS TO 1 TABLET
     Dates: start: 2019
  2. ZOLPIDEM TARTRATE [Suspect]
     Active Substance: ZOLPIDEM TARTRATE
     Dosage: 3 TO 4 TIMES A DAY, AROUND 20 TABLETS EACH TIME
  3. ZOLPIDEM TARTRATE [Suspect]
     Active Substance: ZOLPIDEM TARTRATE
     Dosage: 20 DF, QD
     Route: 048
     Dates: start: 20250501, end: 2025
  4. ZOLPIDEM TARTRATE [Suspect]
     Active Substance: ZOLPIDEM TARTRATE
     Dosage: TOOK 6-7 TABLETS
     Dates: start: 2025, end: 20251113

REACTIONS (7)
  - Drug dependence [Recovering/Resolving]
  - Hallucination [Recovering/Resolving]
  - Dysphoria [Recovering/Resolving]
  - Insomnia [Recovering/Resolving]
  - Discomfort [Recovering/Resolving]
  - Disturbance in attention [Recovering/Resolving]
  - Extra dose administered [Unknown]

NARRATIVE: CASE EVENT DATE: 20190101
